FAERS Safety Report 6357104-6 (Version None)
Quarter: 2009Q3

REPORT INFORMATION
  Report Type: 
  Country: None (occurrence: None)
  Receive Date: 20090910
  Receipt Date: 20090826
  Transmission Date: 20100115
  Serious: Yes (Hospitalization)
  Sender: FDA-Public Use
  Company Number: 2009002593

PATIENT
  Age: 77 Year
  Sex: Male
  Weight: 77 kg

DRUGS (18)
  1. ERLOTINIB HYDROCHLORIDE [Suspect]
     Indication: NON-SMALL CELL LUNG CANCER
     Dosage: 150 MG, QD, ORAL
     Route: 048
     Dates: start: 20090709, end: 20090826
  2. ERLOTINIB HYDROCHLORIDE [Suspect]
  3. PEMETREXED [Suspect]
     Indication: NON-SMALL CELL LUNG CANCER
     Dosage: 281.25 MG/M2, Q21D, INTRAVENOUS
     Route: 042
     Dates: start: 20090708, end: 20090819
  4. ASPIRIN [Concomitant]
  5. LISINOPRIL [Concomitant]
  6. METOPROLOL TARTRATE [Concomitant]
  7. IMDUR [Concomitant]
  8. PLAVIX [Concomitant]
  9. PRAVASTATIN [Concomitant]
  10. ARICEPT [Concomitant]
  11. COLACE (DOCUSATE SODIUM) [Concomitant]
  12. VITAMIN D (ERGOCALIFEROL) [Concomitant]
  13. ADVAIR INHALER (SERETIDE MITE) [Concomitant]
  14. SPIRIVA [Concomitant]
  15. PREDNISONE TAB [Concomitant]
  16. BENADRYL [Concomitant]
  17. VITAMIN B12 [Concomitant]
  18. FOLIC ACID [Concomitant]

REACTIONS (5)
  - DECREASED APPETITE [None]
  - DEHYDRATION [None]
  - HYPONATRAEMIA [None]
  - HYPOTENSION [None]
  - INAPPROPRIATE ANTIDIURETIC HORMONE SECRETION [None]
